FAERS Safety Report 16403397 (Version 1)
Quarter: 2019Q2

REPORT INFORMATION
  Report Type: Spontaneous
  Country: GR (occurrence: GR)
  Receive Date: 20190607
  Receipt Date: 20190607
  Transmission Date: 20190711
  Serious: Yes (Other)
  Sender: FDA-Public Use
  Company Number: GR-ROCHE-2329233

PATIENT
  Age: 78 Year
  Sex: Male

DRUGS (4)
  1. AFLIBERCEPT [Suspect]
     Active Substance: AFLIBERCEPT
     Indication: RECTAL CANCER METASTATIC
     Route: 065
  2. AFLIBERCEPT [Suspect]
     Active Substance: AFLIBERCEPT
     Route: 065
     Dates: start: 2016
  3. OXALIPLATIN. [Suspect]
     Active Substance: OXALIPLATIN
     Indication: PRODUCT USED FOR UNKNOWN INDICATION
     Route: 065
  4. CAPECITABINE. [Suspect]
     Active Substance: CAPECITABINE
     Indication: PRODUCT USED FOR UNKNOWN INDICATION
     Dosage: UNK
     Route: 048

REACTIONS (6)
  - Therapeutic response decreased [Unknown]
  - Albuminuria [Recovering/Resolving]
  - Condition aggravated [Unknown]
  - Nephrotic syndrome [Unknown]
  - Bone marrow toxicity [Unknown]
  - Disease progression [Unknown]

NARRATIVE: CASE EVENT DATE: 2017
